FAERS Safety Report 11050432 (Version 1)
Quarter: 2015Q2

REPORT INFORMATION
  Report Type: Spontaneous
  Country: US (occurrence: None)
  Receive Date: 20150420
  Receipt Date: 20150420
  Transmission Date: 20150821
  Serious: Yes (Disabling)
  Sender: FDA-Public Use
  Company Number: None

PATIENT
  Age: 68 Year
  Sex: Female
  Weight: 127.01 kg

DRUGS (15)
  1. FLONASE [Concomitant]
     Active Substance: FLUTICASONE PROPIONATE
  2. POTASSIUM [Concomitant]
     Active Substance: POTASSIUM
  3. LUTEIN AND ZEAXANTHIN [Concomitant]
  4. GABAPENTIN. [Concomitant]
     Active Substance: GABAPENTIN
  5. SINGULAIR [Concomitant]
     Active Substance: MONTELUKAST SODIUM
  6. VITAMIN D [Concomitant]
     Active Substance: CHOLECALCIFEROL
  7. FEXOFENADINE [Concomitant]
     Active Substance: FEXOFENADINE\FEXOFENADINE HYDROCHLORIDE
  8. ENOXAPARIN SODIUM. [Suspect]
     Active Substance: ENOXAPARIN SODIUM
     Indication: THROMBOSIS
  9. ATENOLOL. [Concomitant]
     Active Substance: ATENOLOL
  10. LEVOTHYROXINE [Concomitant]
     Active Substance: LEVOTHYROXINE
  11. SYMBICORT [Concomitant]
     Active Substance: BUDESONIDE\FORMOTEROL FUMARATE DIHYDRATE
  12. ALBUTEROL. [Concomitant]
     Active Substance: ALBUTEROL
  13. ATORVASTATIN [Concomitant]
     Active Substance: ATORVASTATIN
  14. MULTIVITAMIN [Concomitant]
     Active Substance: VITAMINS
  15. VITAMIN B-100 [Concomitant]

REACTIONS (2)
  - Hypersensitivity [None]
  - Blister [None]

NARRATIVE: CASE EVENT DATE: 20150321
